FAERS Safety Report 16955857 (Version 1)
Quarter: 2019Q4

REPORT INFORMATION
  Report Type: Spontaneous
  Country: US (occurrence: US)
  Receive Date: 20191023
  Receipt Date: 20191023
  Transmission Date: 20200122
  Serious: Yes (Hospitalization)
  Sender: FDA-Public Use
  Company Number: None

PATIENT
  Age: 67 Year
  Sex: Female

DRUGS (9)
  1. PREDNISONE. [Concomitant]
     Active Substance: PREDNISONE
  2. HUMIRA [Suspect]
     Active Substance: ADALIMUMAB
     Indication: RHEUMATOID ARTHRITIS
     Dosage: ?          OTHER FREQUENCY:EVERY OTHER WEEK;?
     Route: 058
     Dates: start: 20190803
  3. CENTRUM [Concomitant]
     Active Substance: VITAMINS
  4. EXTRA ACTION SYP [Concomitant]
  5. SINGULAIR [Concomitant]
     Active Substance: MONTELUKAST SODIUM
  6. SULFASALAZINE DELAYED-RELEASE [Concomitant]
     Active Substance: SULFASALAZINE
  7. FOLIC ACID. [Concomitant]
     Active Substance: FOLIC ACID
  8. NEXIUM [Concomitant]
     Active Substance: ESOMEPRAZOLE MAGNESIUM
  9. CLARITIN [Concomitant]
     Active Substance: LORATADINE

REACTIONS (2)
  - Product dose omission [None]
  - Hospitalisation [None]

NARRATIVE: CASE EVENT DATE: 20191011
